FAERS Safety Report 9814522 (Version 1)
Quarter: 2014Q1

REPORT INFORMATION
  Report Type: Spontaneous
  Country: US (occurrence: US)
  Receive Date: 20140113
  Receipt Date: 20140113
  Transmission Date: 20141002
  Serious: No
  Sender: FDA-Public Use
  Company Number: US-BIOGENIDEC-2014BI000039

PATIENT
  Age: 52 Year
  Sex: Female

DRUGS (6)
  1. TECFIDERA [Suspect]
     Indication: MULTIPLE SCLEROSIS
     Route: 048
     Dates: start: 20131212, end: 20131215
  2. LISINOPRIL [Concomitant]
  3. HYDROCODONE APAP 7.5/500 [Concomitant]
  4. BUPROPION [Concomitant]
  5. ABILIFY [Concomitant]
  6. TRAZADONE [Concomitant]

REACTIONS (4)
  - Dizziness [Recovered/Resolved]
  - Mobility decreased [Recovered/Resolved]
  - Hot flush [Recovered/Resolved]
  - Abdominal pain upper [Recovered/Resolved]
